FAERS Safety Report 17913318 (Version 1)
Quarter: 2020Q2

REPORT INFORMATION
  Report Type: Spontaneous
  Country: US (occurrence: US)
  Receive Date: 20200618
  Receipt Date: 20200618
  Transmission Date: 20200714
  Serious: Yes (Hospitalization, Other)
  Sender: FDA-Public Use
  Company Number: US-B.I. PHARMACEUTICALS,INC./RIDGEFIELD-2020-US-029567

PATIENT
  Sex: Female

DRUGS (3)
  1. HUMULIN R [Concomitant]
     Active Substance: INSULIN HUMAN
     Indication: PRODUCT USED FOR UNKNOWN INDICATION
     Route: 065
  2. HUMALOG [Concomitant]
     Active Substance: INSULIN LISPRO
     Indication: PRODUCT USED FOR UNKNOWN INDICATION
     Dosage: 150 UNITS DAILY
     Route: 065
  3. JARDIANCE [Suspect]
     Active Substance: EMPAGLIFLOZIN
     Indication: TYPE 2 DIABETES MELLITUS
     Dosage: 1 TABLET DAILY
     Route: 065
     Dates: start: 2016, end: 201705

REACTIONS (12)
  - Wound [Recovered/Resolved]
  - Osteomyelitis [Recovered/Resolved]
  - Retinopathy [Unknown]
  - Impaired healing [Recovered/Resolved]
  - Infection [Not Recovered/Not Resolved]
  - Impaired gastric emptying [Unknown]
  - Fungal infection [Recovered/Resolved]
  - Hypertension [Unknown]
  - Renal disorder [Not Recovered/Not Resolved]
  - Wound infection [Recovered/Resolved]
  - Malignant melanoma [Recovered/Resolved]
  - Blood glucose increased [Not Recovered/Not Resolved]

NARRATIVE: CASE EVENT DATE: 2016
